FAERS Safety Report 11304412 (Version 1)
Quarter: 2015Q3

REPORT INFORMATION
  Report Type: Spontaneous
  Country: US (occurrence: US)
  Receive Date: 20150723
  Receipt Date: 20150723
  Transmission Date: 20151125
  Serious: No
  Sender: FDA-Public Use
  Company Number: US-JNJFOC-20141019652

PATIENT
  Age: 84 Year
  Sex: Male
  Weight: 58.97 kg

DRUGS (3)
  1. ZYRTEC [Suspect]
     Active Substance: CETIRIZINE HYDROCHLORIDE
     Indication: SNEEZING
     Dosage: USED OVER 30 DAYS
     Route: 048
     Dates: start: 20140911, end: 20141023
  2. ZYRTEC [Suspect]
     Active Substance: CETIRIZINE HYDROCHLORIDE
     Indication: LACRIMATION INCREASED
     Dosage: USED OVER 30 DAYS
     Route: 048
     Dates: start: 20140911, end: 20141023
  3. ZYRTEC [Suspect]
     Active Substance: CETIRIZINE HYDROCHLORIDE
     Indication: RHINORRHOEA
     Dosage: USED OVER 30 DAYS
     Route: 048
     Dates: start: 20140911, end: 20141023

REACTIONS (1)
  - Drug ineffective [Unknown]
